FAERS Safety Report 5900417-X (Version None)
Quarter: 2008Q3

REPORT INFORMATION
  Report Type: 
  Country: None (occurrence: None)
  Receive Date: 20080926
  Receipt Date: 20080915
  Transmission Date: 20090109
  Serious: Yes (Death, Hospitalization)
  Sender: FDA-Public Use
  Company Number: US-PFIZER INC-2008049298

PATIENT
  Sex: Male
  Weight: 64 kg

DRUGS (2)
  1. SUTENT [Suspect]
     Indication: METASTATIC RENAL CELL CARCINOMA
     Route: 048
     Dates: start: 20080317
  2. PERCOCET [Concomitant]
     Route: 048
     Dates: start: 20080102

REACTIONS (5)
  - ASCITES [None]
  - CONSTIPATION [None]
  - DISEASE PROGRESSION [None]
  - DYSPNOEA [None]
  - METASTATIC RENAL CELL CARCINOMA [None]
